FAERS Safety Report 15377118 (Version 2)
Quarter: 2018Q3

REPORT INFORMATION
  Report Type: Spontaneous
  Country: IT (occurrence: IT)
  Receive Date: 20180913
  Receipt Date: 20180925
  Transmission Date: 20181010
  Serious: Yes (Other)
  Sender: FDA-Public Use
  Company Number: IT-ASTRAZENECA-2018SF12305

PATIENT
  Age: 64 Year
  Sex: Female
  Weight: 73 kg

DRUGS (1)
  1. FULVESTRANT. [Suspect]
     Active Substance: FULVESTRANT
     Indication: PRODUCT USED FOR UNKNOWN INDICATION
     Dosage: UNK
     Route: 030
     Dates: start: 20180614

REACTIONS (9)
  - Neutropenia [Recovered/Resolved]
  - Thrombocytopenia [Recovered/Resolved]
  - Stomatitis [Unknown]
  - Metastases to liver [Unknown]
  - Rash [Unknown]
  - Malignant neoplasm progression [Unknown]
  - Conjunctivitis [Unknown]
  - Asthenia [Unknown]
  - Breast cancer [Unknown]

NARRATIVE: CASE EVENT DATE: 20180530
